FAERS Safety Report 18672976 (Version 1)
Quarter: 2020Q4

REPORT INFORMATION
  Report Type: Spontaneous
  Country: US (occurrence: US)
  Receive Date: 20201229
  Receipt Date: 20201229
  Transmission Date: 20210114
  Serious: No
  Sender: FDA-Public Use
  Company Number: US-UNITED THERAPEUTICS-UNT-2020-020373

PATIENT
  Sex: Female
  Weight: 106.12 kg

DRUGS (3)
  1. ORENITRAM [Suspect]
     Active Substance: TREPROSTINIL
     Indication: PULMONARY ARTERIAL HYPERTENSION
     Dosage: UNK
     Route: 048
     Dates: start: 20201008
  2. ORENITRAM [Suspect]
     Active Substance: TREPROSTINIL
     Dosage: 15 MG, Q8H
     Route: 048
  3. ORENITRAM [Suspect]
     Active Substance: TREPROSTINIL
     Indication: PULMONARY ARTERIAL HYPERTENSION
     Route: 048

REACTIONS (3)
  - Oropharyngeal pain [Unknown]
  - Ear pain [Unknown]
  - Throat irritation [Unknown]

NARRATIVE: CASE EVENT DATE: 2020
